FAERS Safety Report 10181056 (Version 1)
Quarter: 2014Q2

REPORT INFORMATION
  Report Type: Spontaneous
  Country: US (occurrence: US)
  Receive Date: 20140519
  Receipt Date: 20140519
  Transmission Date: 20141212
  Serious: No
  Sender: FDA-Public Use
  Company Number: US-AMGEN INC.-USASP2014021490

PATIENT
  Age: 61 Year
  Sex: Female

DRUGS (8)
  1. PROLIA [Suspect]
     Indication: OSTEOPOROSIS POSTMENOPAUSAL
     Dosage: 60 MG, Q6MO
     Route: 065
     Dates: start: 20130926
  2. ATENOLOL [Concomitant]
  3. LIPITOR [Concomitant]
  4. BABY ASPIRIN [Concomitant]
  5. ZYRTEC [Concomitant]
     Indication: HYPERSENSITIVITY
  6. EVISTA [Concomitant]
  7. VITAMIN D                          /00107901/ [Concomitant]
     Dosage: 50,000 UNITS WEEKLY, AND 4,000 UNITS DAILY
  8. ARMOUR THYROID [Concomitant]

REACTIONS (1)
  - Gastrooesophageal reflux disease [Unknown]
